FAERS Safety Report 5124786-6 (Version None)
Quarter: 2006Q4

REPORT INFORMATION
  Report Type: 
  Country: None (occurrence: None)
  Receive Date: 20061011
  Receipt Date: 20061002
  Transmission Date: 20070319
  Serious: Yes (Hospitalization)
  Sender: FDA-Public Use
  Company Number: 2006UW19278

PATIENT
  Age: 50 Year
  Sex: Female
  Weight: 63 kg

DRUGS (5)
  1. SYMBICORT [Suspect]
     Indication: ASTHMA
     Dosage: 160/4.5 UG BID
     Route: 055
     Dates: start: 20020101, end: 20050501
  2. SYMBICORT [Suspect]
     Dosage: 320/9 UG BID
     Route: 055
     Dates: start: 20050501
  3. ATROVENT [Concomitant]
     Indication: ASTHMA
     Route: 055
  4. BEROTEC [Concomitant]
     Indication: ASTHMA
     Route: 055
  5. PREDNISONE TAB [Concomitant]
     Indication: ASTHMATIC CRISIS
     Route: 048

REACTIONS (2)
  - DYSPHONIA [None]
  - RESPIRATORY ARREST [None]
